FAERS Safety Report 12486447 (Version 1)
Quarter: 2016Q2

REPORT INFORMATION
  Report Type: Spontaneous
  Country: JP (occurrence: JP)
  Receive Date: 20160621
  Receipt Date: 20160621
  Transmission Date: 20160815
  Serious: Yes (Hospitalization, Other)
  Sender: FDA-Public Use
  Company Number: JP-JNJFOC-20160616691

PATIENT
  Age: 69 Year
  Sex: Female

DRUGS (3)
  1. LYRICA [Suspect]
     Active Substance: PREGABALIN
     Indication: NEURALGIA
     Dosage: 1 PER 1 DAY
     Route: 048
     Dates: start: 20060916, end: 20140926
  2. TRAMCET [Suspect]
     Active Substance: ACETAMINOPHEN\TRAMADOL
     Indication: PAIN
     Dosage: 2 PER 1 DAY
     Route: 048
     Dates: start: 20060916
  3. CIBENOL [Suspect]
     Active Substance: CIFENLINE
     Indication: ARRHYTHMIA
     Dosage: 3 PER 1 DAY
     Route: 048
     Dates: start: 20131220, end: 20140926

REACTIONS (7)
  - Arrhythmia [Not Recovered/Not Resolved]
  - Diabetes mellitus [Not Recovered/Not Resolved]
  - Decreased appetite [Unknown]
  - Diabetic nephropathy [Not Recovered/Not Resolved]
  - Generalised oedema [Unknown]
  - Cardiac failure [Recovered/Resolved]
  - Oedema [Recovered/Resolved]

NARRATIVE: CASE EVENT DATE: 20070224
